FAERS Safety Report 20875165 (Version 1)
Quarter: 2022Q2

REPORT INFORMATION
  Report Type: Spontaneous
  Country: FR (occurrence: FR)
  Receive Date: 20220526
  Receipt Date: 20220526
  Transmission Date: 20220721
  Serious: Yes (Other)
  Sender: FDA-Public Use
  Company Number: FR-AFSSAPS-TS20221248

PATIENT
  Age: 62 Year
  Sex: Male

DRUGS (8)
  1. CEFTRIAXONE [Suspect]
     Active Substance: CEFTRIAXONE
     Indication: Infection
     Dosage: 1 GRAM, ONCE A DAY
     Route: 042
     Dates: start: 20210524, end: 20210601
  2. FLUCONAZOLE [Suspect]
     Active Substance: FLUCONAZOLE
     Indication: Infection
     Dosage: 400 MILLIGRAM, ONCE A DAY
     Route: 042
     Dates: start: 20210524, end: 20210601
  3. METRONIDAZOLE [Suspect]
     Active Substance: METRONIDAZOLE
     Indication: Infection
     Dosage: 500 MILLIGRAM, 3 TIMES A DAY
     Route: 042
     Dates: start: 20210524, end: 20210601
  4. ACETAMINOPHEN [Suspect]
     Active Substance: ACETAMINOPHEN
     Indication: Pain
     Dosage: 1 GRAM, FOUR TIMES/DAY
     Route: 042
     Dates: start: 20210524, end: 20210603
  5. TRAMADOL [Suspect]
     Active Substance: TRAMADOL
     Indication: Pain
     Dosage: 150 MILLIGRAM, ONCE A DAY
     Route: 042
     Dates: start: 20210524, end: 20210603
  6. ESOMEPRAZOLE [Suspect]
     Active Substance: ESOMEPRAZOLE
     Indication: Ulcer
     Dosage: 160 MILLIGRAM, ONCE A DAY
     Route: 042
     Dates: start: 20210524, end: 20210601
  7. DEXTROSE\POTASSIUM CHLORIDE\SODIUM CHLORIDE [Suspect]
     Active Substance: DEXTROSE\POTASSIUM CHLORIDE\SODIUM CHLORIDE
     Indication: Fluid replacement
     Dosage: 2000 MILLILITER, ONCE A DAY
     Route: 042
     Dates: start: 20210524, end: 20210601
  8. OLIMEL E [Suspect]
     Active Substance: AMINO ACIDS\DEXTROSE\ELECTROLYTES NOS\SOYBEAN OIL
     Indication: Parenteral nutrition
     Dosage: 1500 MILLILITER, ONCE A DAY
     Route: 042
     Dates: start: 20210529, end: 20210601

REACTIONS (1)
  - Superficial vein thrombosis [Recovering/Resolving]

NARRATIVE: CASE EVENT DATE: 20210601
